FAERS Safety Report 24262724 (Version 1)
Quarter: 2024Q3

REPORT INFORMATION
  Report Type: Report from Study
  Country: US (occurrence: None)
  Receive Date: 20240829
  Receipt Date: 20240829
  Transmission Date: 20241017
  Serious: Yes (Other)
  Sender: ASTRAZENECA
  Company Number: 2024A191087

PATIENT
  Sex: Female

DRUGS (2)
  1. TAGRISSO [Suspect]
     Active Substance: OSIMERTINIB
     Route: 048
  2. PREDNISONE [Concomitant]
     Active Substance: PREDNISONE

REACTIONS (2)
  - Radiation pneumonitis [Unknown]
  - Upper respiratory tract infection [Unknown]
